FAERS Safety Report 5207639-4 (Version None)
Quarter: 2007Q1

REPORT INFORMATION
  Report Type: 
  Country: None (occurrence: None)
  Receive Date: 20070112
  Receipt Date: 20061114
  Transmission Date: 20070707
  Serious: Yes (Death, Hospitalization, Other)
  Sender: FDA-Public Use
  Company Number: US-PFIZER INC-2006141559

PATIENT
  Sex: Male

DRUGS (2)
  1. BEXTRA [Suspect]
     Route: 048
     Dates: start: 20031121, end: 20031130
  2. VIOXX [Suspect]
     Dates: start: 20010920

REACTIONS (1)
  - PULMONARY EMBOLISM [None]
